FAERS Safety Report 8907198 (Version 2)
Quarter: 2013Q1

REPORT INFORMATION
  Report Type: Spontaneous
  Country: NZ (occurrence: NZ)
  Receive Date: 20121114
  Receipt Date: 20130227
  Transmission Date: 20140127
  Serious: Yes (Hospitalization, Congenital Anomaly)
  Sender: FDA-Public Use
  Company Number: PHHY2012NZ104660

PATIENT
  Sex: Male

DRUGS (2)
  1. QUINAPRIL [Suspect]
  2. NITROFURANTOIN [Suspect]
     Route: 064

REACTIONS (8)
  - Foetal growth restriction [Unknown]
  - Low birth weight baby [Recovering/Resolving]
  - Kidney malformation [Unknown]
  - Hyponatraemia [Unknown]
  - Respiratory distress [Unknown]
  - Pneumomediastinum [Recovered/Resolved]
  - Pneumothorax [Recovered/Resolved]
  - Foetal exposure during pregnancy [Unknown]
